FAERS Safety Report 4264012-3 (Version None)
Quarter: 2004Q1

REPORT INFORMATION
  Report Type: 
  Country: None (occurrence: None)
  Receive Date: 20040106
  Receipt Date: 20040106
  Transmission Date: 20041129
  Serious: No
  Sender: FDA-Public Use
  Company Number: None

PATIENT
  Sex: Female

DRUGS (6)
  1. METFORMIN HCL [Suspect]
     Indication: DIABETES MELLITUS
     Dosage: 1 TID
     Dates: start: 20031106
  2. MAXAIR [Concomitant]
  3. AZMACORT [Concomitant]
  4. THEO-24 [Concomitant]
  5. COZAAR [Concomitant]
  6. FLONASE [Concomitant]

REACTIONS (1)
  - BLOOD GLUCOSE INCREASED [None]
